FAERS Safety Report 13392550 (Version 1)
Quarter: 2017Q1

REPORT INFORMATION
  Report Type: Spontaneous
  Country: FR (occurrence: FR)
  Receive Date: 20170331
  Receipt Date: 20170331
  Transmission Date: 20170429
  Serious: Yes (Death, Other)
  Sender: FDA-Public Use
  Company Number: FR-ASTRAZENECA-2017SE32229

PATIENT
  Age: 78 Year
  Sex: Male

DRUGS (11)
  1. EZESTROL [Concomitant]
     Dosage: 10.0MG UNKNOWN
  2. METFORMIN [Concomitant]
     Active Substance: METFORMIN HYDROCHLORIDE
  3. BRILIQUE [Suspect]
     Active Substance: TICAGRELOR
     Route: 048
     Dates: start: 20170124, end: 20170129
  4. VENLAFAXINE [Suspect]
     Active Substance: VENLAFAXINE HYDROCHLORIDE
     Indication: DEPRESSION
     Dosage: 1.0DF UNKNOWN
     Route: 048
     Dates: end: 20170129
  5. ATORVASTATIN [Concomitant]
     Active Substance: ATORVASTATIN
  6. EUPANTOL [Concomitant]
     Active Substance: PANTOPRAZOLE SODIUM
  7. TRIATEC [Concomitant]
     Active Substance: RAMIPRIL
     Dosage: 2.5MG UNKNOWN
  8. PERMIXON [Concomitant]
     Active Substance: SAW PALMETTO
  9. GLICLAZIDE [Concomitant]
     Active Substance: GLICLAZIDE
  10. JANUVIA [Concomitant]
     Active Substance: SITAGLIPTIN PHOSPHATE
  11. KARDEGIC [Suspect]
     Active Substance: ASPIRIN LYSINE
     Indication: ANGIOPLASTY
     Route: 065
     Dates: end: 20170129

REACTIONS (4)
  - Craniocerebral injury [Unknown]
  - Brain herniation [Fatal]
  - Subdural haematoma [Fatal]
  - Coma [Fatal]

NARRATIVE: CASE EVENT DATE: 20170130
